FAERS Safety Report 15075557 (Version 1)
Quarter: 2018Q2

REPORT INFORMATION
  Report Type: Spontaneous
  Country: US (occurrence: US)
  Receive Date: 20180627
  Receipt Date: 20180627
  Transmission Date: 20180711
  Serious: Yes (Other)
  Sender: FDA-Public Use
  Company Number: US-SAOL THERAPEUTICS-2018SAO00191

PATIENT
  Sex: Female
  Weight: 94.3 kg

DRUGS (6)
  1. MORPHINE SULFATE IMMEDIATE RELEASE [Concomitant]
     Active Substance: MORPHINE SULFATE
  2. MORPHINE [Suspect]
     Active Substance: MORPHINE
     Route: 037
  3. BACLOFEN. [Suspect]
     Active Substance: BACLOFEN
     Indication: PAIN
     Route: 037
  4. BACLOFEN. [Suspect]
     Active Substance: BACLOFEN
     Indication: POST LAMINECTOMY SYNDROME
  5. CLONIDINE. [Suspect]
     Active Substance: CLONIDINE
     Route: 037
  6. BUPIVACAINE. [Suspect]
     Active Substance: BUPIVACAINE
     Route: 037

REACTIONS (8)
  - Sedation [Recovered/Resolved]
  - Device failure [Recovered/Resolved]
  - Therapy non-responder [Recovered/Resolved]
  - Device infusion issue [Recovered/Resolved]
  - Cerebrovascular accident [Not Recovered/Not Resolved]
  - Overdose [Recovered/Resolved]
  - Off label use [Unknown]
  - Blood pressure abnormal [Unknown]

NARRATIVE: CASE EVENT DATE: 2017
